FAERS Safety Report 4549413-8 (Version None)
Quarter: 2005Q1

REPORT INFORMATION
  Report Type: 
  Country: None (occurrence: None)
  Receive Date: 20050111
  Receipt Date: 20040917
  Transmission Date: 20050727
  Serious: Yes (Hospitalization)
  Sender: FDA-Public Use
  Company Number: 200419205GDDC

PATIENT
  Age: 97 Year
  Sex: Female
  Weight: 45 kg

DRUGS (2)
  1. NATRILIX [Suspect]
     Indication: HYPERTENSION
     Route: 048
     Dates: start: 20040427, end: 20040829
  2. ZOPLICONE [Concomitant]

REACTIONS (5)
  - BLOOD CREATININE INCREASED [None]
  - BLOOD POTASSIUM DECREASED [None]
  - BLOOD SODIUM DECREASED [None]
  - BLOOD UREA INCREASED [None]
  - FALL [None]
